FAERS Safety Report 9830410 (Version 1)
Quarter: 2014Q1

REPORT INFORMATION
  Report Type: Spontaneous
  Country: US (occurrence: US)
  Receive Date: 20140120
  Receipt Date: 20140120
  Transmission Date: 20141002
  Serious: Yes (Death)
  Sender: FDA-Public Use
  Company Number: US-PFIZER INC-2014008161

PATIENT
  Age: 19 Year
  Sex: Male

DRUGS (3)
  1. DEXTROMETHORPHAN HBR [Suspect]
     Route: 065
  2. HEROIN [Suspect]
     Route: 065
  3. CITALOPRAM [Suspect]
     Route: 065

REACTIONS (1)
  - Drug abuse [Fatal]
